FAERS Safety Report 13648971 (Version 10)
Quarter: 2018Q4

REPORT INFORMATION
  Report Type: Report from Study
  Country: US (occurrence: US)
  Receive Date: 20170613
  Receipt Date: 20181215
  Transmission Date: 20190204
  Serious: Yes (Death, Hospitalization, Other)
  Sender: FDA-Public Use
  Company Number: US-ACTELION-A-NJ2017-154484

PATIENT
  Age: 69 Year
  Sex: Female
  Weight: 92.52 kg

DRUGS (9)
  1. UPTRAVI [Suspect]
     Active Substance: SELEXIPAG
     Dosage: 1000 MCG, BID
     Route: 048
     Dates: start: 20170623
  2. UPTRAVI [Suspect]
     Active Substance: SELEXIPAG
     Dosage: 1400 MCG, BID
     Route: 048
  3. LASIX [Concomitant]
     Active Substance: FUROSEMIDE
     Route: 042
  4. LASIX [Concomitant]
     Active Substance: FUROSEMIDE
     Dosage: UNK
     Route: 048
  5. UPTRAVI [Suspect]
     Active Substance: SELEXIPAG
     Dosage: 200 MCG, BID
     Route: 048
  6. UPTRAVI [Suspect]
     Active Substance: SELEXIPAG
     Indication: PULMONARY ARTERIAL HYPERTENSION
     Dosage: 1200 MCG, BID
     Route: 048
     Dates: start: 201704, end: 20181114
  7. UPTRAVI [Suspect]
     Active Substance: SELEXIPAG
     Dosage: 600 MCG, BID
     Route: 048
  8. SILDENAFIL CITRATE. [Concomitant]
     Active Substance: SILDENAFIL CITRATE
     Dosage: 20 MG, TID
     Dates: end: 20181114
  9. LETAIRIS [Concomitant]
     Active Substance: AMBRISENTAN
     Dosage: 10 MG, QD
     Dates: end: 20181114

REACTIONS (17)
  - Foot fracture [Unknown]
  - Catheter placement [Unknown]
  - Product dose omission [Unknown]
  - Lung disorder [Unknown]
  - Malaise [Unknown]
  - Cardiac failure congestive [Unknown]
  - Diarrhoea [Unknown]
  - Disease progression [Fatal]
  - Swelling [Recovering/Resolving]
  - Fluid retention [Unknown]
  - Abdominal pain upper [Unknown]
  - Product supply issue [Unknown]
  - Dyspnoea [Fatal]
  - Drug ineffective [Unknown]
  - Right ventricular failure [Fatal]
  - Headache [Unknown]
  - Hypotension [Fatal]

NARRATIVE: CASE EVENT DATE: 201706
